FAERS Safety Report 6316190-X (Version None)
Quarter: 2009Q3

REPORT INFORMATION
  Report Type: 
  Country: None (occurrence: None)
  Receive Date: 20090820
  Receipt Date: 20090814
  Transmission Date: 20100115
  Serious: Yes (Other)
  Sender: FDA-Public Use
  Company Number: BR-ASTRAZENECA-2009SE08620

PATIENT
  Age: 77 Year
  Sex: Male

DRUGS (6)
  1. ATACAND [Suspect]
     Indication: HYPERTENSION
     Route: 048
     Dates: end: 20090813
  2. ATACAND [Suspect]
     Route: 048
  3. CAPTOPRIL [Concomitant]
     Indication: HYPERTENSION
     Dosage: BID
     Route: 048
     Dates: start: 20060101
  4. CAPTOPRIL [Concomitant]
     Dosage: TID
     Route: 048
  5. SUSTRATE [Concomitant]
     Indication: HYPERTENSION
     Dosage: BID
     Route: 048
     Dates: start: 20060101
  6. ASPIRIN [Concomitant]
     Indication: HYPERTENSION
     Dosage: BID
     Route: 048
     Dates: start: 20060101

REACTIONS (4)
  - DRUG INEFFECTIVE [None]
  - GRANULOMA [None]
  - HERNIA [None]
  - HYPERTENSION [None]
